FAERS Safety Report 4290540-0 (Version None)
Quarter: 2004Q1

REPORT INFORMATION
  Report Type: 
  Country: None (occurrence: None)
  Receive Date: 20040209
  Receipt Date: 20040115
  Transmission Date: 20041129
  Serious: Yes (Hospitalization)
  Sender: FDA-Public Use
  Company Number: A02200400186

PATIENT
  Age: 33 Year
  Sex: Female

DRUGS (6)
  1. STILNOX - (ZOLPIDEM) - TABLET - 10 MG [Suspect]
     Dosage: 20 MG BID
     Route: 048
     Dates: start: 20030201, end: 20030616
  2. NOCERTONE (OXETORONE FUMARATE) TABLET 60 MG [Suspect]
     Dosage: 120 MG OD
     Route: 048
     Dates: start: 20030610, end: 20030618
  3. DOXEPIN HCL [Suspect]
     Dosage: 2 DF OD
     Route: 048
     Dates: start: 20030501, end: 20030530
  4. OXAZEPAM [Suspect]
     Dosage: 200 MG OD
     Route: 048
     Dates: start: 20030401, end: 20030618
  5. EFFEXOR [Suspect]
     Dosage: 200 MG OD
     Route: 048
     Dates: start: 20021101, end: 20030618
  6. COMBIVIR [Suspect]
     Dosage: 450 MG BID
     Route: 048
     Dates: start: 20030601, end: 20030616

REACTIONS (3)
  - DRUG ABUSER [None]
  - STEVENS-JOHNSON SYNDROME [None]
  - TOXIC EPIDERMAL NECROLYSIS [None]
